FAERS Safety Report 20656556 (Version 1)
Quarter: 2022Q1

REPORT INFORMATION
  Report Type: Other
  Country: US (occurrence: None)
  Receive Date: 20220331
  Receipt Date: 20220331
  Transmission Date: 20220423
  Serious: Yes (Hospitalization, Other)
  Sender: FDA-Public Use
  Company Number: US-ROCHE-2209093

PATIENT
  Age: 57 Year
  Sex: Male
  Weight: 105.33 kg

DRUGS (12)
  1. CELLCEPT [Suspect]
     Active Substance: MYCOPHENOLATE MOFETIL
     Indication: Renal transplant
     Route: 048
     Dates: start: 20170714
  2. ABILIFY [Concomitant]
     Active Substance: ARIPIPRAZOLE
     Route: 048
     Dates: start: 20181212
  3. AMLODIPINE [Concomitant]
     Active Substance: AMLODIPINE BESYLATE
     Route: 048
     Dates: start: 20200713
  4. ATIVAN [Concomitant]
     Active Substance: LORAZEPAM
     Dosage: AS NEEDED
     Route: 048
     Dates: start: 20141222
  5. GLIPIZIDE [Concomitant]
     Active Substance: GLIPIZIDE
     Indication: Type 2 diabetes mellitus
     Route: 048
     Dates: start: 20150710
  6. LEVOTHYROXINE [Concomitant]
     Active Substance: LEVOTHYROXINE
     Route: 048
     Dates: start: 20131230
  7. LIPITOR [Concomitant]
     Active Substance: ATORVASTATIN CALCIUM
     Indication: Hyperlipidaemia
     Route: 048
     Dates: start: 20141222
  8. LOFIBRA (UNITED STATES) [Concomitant]
     Route: 048
     Dates: start: 20150710
  9. NEXIUM [Concomitant]
     Active Substance: ESOMEPRAZOLE MAGNESIUM
     Dates: start: 20190812
  10. PREDNISONE [Concomitant]
     Active Substance: PREDNISONE
     Route: 048
     Dates: start: 20190805
  11. TACROLIMUS [Concomitant]
     Active Substance: TACROLIMUS
     Dosage: TAKE 3 CAPSULE BY MOUTH EVERY MORNING AND 2 CAPSULE EVERY EVENING
     Route: 048
     Dates: start: 20200622
  12. TAMSULOSIN [Concomitant]
     Active Substance: TAMSULOSIN
     Dosage: TAKE 2 CAPSULES EVERYDAY BY ORAL ROUTE AT BEDTIME
     Route: 048
     Dates: start: 20131230

REACTIONS (17)
  - Skin laceration [Recovered/Resolved]
  - Hypertension [Unknown]
  - Visual impairment [Unknown]
  - Obesity [Recovering/Resolving]
  - Nasopharyngitis [Unknown]
  - Pain [Unknown]
  - Generalised anxiety disorder [Unknown]
  - Bladder dysfunction [Unknown]
  - Abdominal pain lower [Unknown]
  - Arthralgia [Unknown]
  - Depression [Unknown]
  - Off label use [Unknown]
  - Radiculopathy [Unknown]
  - Hypovolaemia [Recovering/Resolving]
  - Fracture treatment [Unknown]
  - Intervertebral disc disorder [Unknown]
  - Neuralgia [Unknown]

NARRATIVE: CASE EVENT DATE: 20190907
